FAERS Safety Report 7293747-3 (Version None)
Quarter: 2011Q1

REPORT INFORMATION
  Report Type: 
  Country: None (occurrence: None)
  Receive Date: 20110203
  Receipt Date: 20110119
  Transmission Date: 20110831
  Serious: Yes (Hospitalization)
  Sender: FDA-Public Use
  Company Number: AUR-APL-2011-00280

PATIENT
  Age: 83 Year
  Sex: Female

DRUGS (3)
  1. ALENDRONATE SODIUM [Suspect]
  2. ASPIRIN [Suspect]
  3. CLOPIDOGREL [Suspect]

REACTIONS (3)
  - OESOPHAGITIS [None]
  - HAEMATEMESIS [None]
  - RECTAL HAEMORRHAGE [None]
